FAERS Safety Report 4498683-3 (Version None)
Quarter: 2004Q4

REPORT INFORMATION
  Report Type: 
  Country: None (occurrence: None)
  Receive Date: 20041108
  Receipt Date: 20040504
  Transmission Date: 20050328
  Serious: Yes (Hospitalization)
  Sender: FDA-Public Use
  Company Number: ATO-04-0447

PATIENT
  Age: 80 Year
  Sex: Male

DRUGS (2)
  1. TRISENOX [Suspect]
     Indication: MYELODYSPLASTIC SYNDROME
     Dosage: (0.25 MG/KG, 2X/WK, IVI
     Route: 042
  2. FOLIC ACID [Concomitant]

REACTIONS (4)
  - LUNG INFILTRATION [None]
  - NEUTROPENIA [None]
  - PNEUMONIA [None]
  - WHITE BLOOD CELL COUNT DECREASED [None]
